FAERS Safety Report 16290778 (Version 1)
Quarter: 2019Q2

REPORT INFORMATION
  Report Type: Spontaneous
  Country: US (occurrence: US)
  Receive Date: 20190509
  Receipt Date: 20190509
  Transmission Date: 20190711
  Serious: No
  Sender: FDA-Public Use
  Company Number: US-PFIZER INC-2018419726

PATIENT
  Age: 64 Year

DRUGS (2)
  1. VIAGRA [Suspect]
     Active Substance: SILDENAFIL CITRATE
     Dosage: UNK
  2. VIAGRA [Suspect]
     Active Substance: SILDENAFIL CITRATE
     Dosage: UNK

REACTIONS (5)
  - Arthropathy [Unknown]
  - Back disorder [Unknown]
  - Product prescribing error [Unknown]
  - Intervertebral disc protrusion [Unknown]
  - Hypertension [Unknown]
